FAERS Safety Report 5192550-8 (Version None)
Quarter: 2006Q4

REPORT INFORMATION
  Report Type: 
  Country: None (occurrence: None)
  Receive Date: 20061220
  Receipt Date: 20061127
  Transmission Date: 20070319
  Serious: Yes (Hospitalization, Other)
  Sender: FDA-Public Use
  Company Number: 2006SP007500

PATIENT
  Age: 17 Year
  Sex: Female

DRUGS (2)
  1. BETAMETHASONE [Suspect]
     Indication: INFLUENZA
     Dosage: 6 MG; QD; IM
     Route: 030
  2. CLRITHROMYCIN (CON.) [Concomitant]

REACTIONS (1)
  - MANIA [None]
